FAERS Safety Report 4634622-X (Version None)
Quarter: 2005Q2

REPORT INFORMATION
  Report Type: 
  Country: None (occurrence: None)
  Receive Date: 20050413
  Receipt Date: 20050405
  Transmission Date: 20051028
  Serious: Yes (Other)
  Sender: FDA-Public Use
  Company Number: 2005054414

PATIENT
  Age: 59 Year
  Sex: Male

DRUGS (7)
  1. LIPITOR [Suspect]
     Indication: ILL-DEFINED DISORDER
     Dosage: 10 MG (10 MG, 1 IN 1 D)
     Dates: start: 19980429
  2. THEOPHYL-SR [Concomitant]
  3. ADALAT OROS (NIFEDIPINE) (NIFEDIPINE) [Concomitant]
  4. ASPIRIN [Concomitant]
  5. ALPHA TOCOPHEROL (TOCOPHEROL NICOTINATE) [Concomitant]
  6. VIBRA-TABS 50 (DOXYCYCLINE HYDROCHLORIDE) [Concomitant]
  7. PREDNISONE [Concomitant]

REACTIONS (4)
  - AMNESIA [None]
  - CONFUSIONAL STATE [None]
  - HEADACHE [None]
  - PARAESTHESIA [None]
